FAERS Safety Report 18580926 (Version 1)
Quarter: 2020Q4

REPORT INFORMATION
  Report Type: Spontaneous
  Country: DE (occurrence: DE)
  Receive Date: 20201204
  Receipt Date: 20201204
  Transmission Date: 20210114
  Serious: Yes (Hospitalization)
  Sender: FDA-Public Use
  Company Number: DE-ALLERGAN-2046786US

PATIENT
  Sex: Male

DRUGS (2)
  1. CARIPRAZINE HCL - BP [Suspect]
     Active Substance: CARIPRAZINE HYDROCHLORIDE
     Indication: PRODUCT USED FOR UNKNOWN INDICATION
     Dosage: 4.5 MG, UNKNOWN FREQUENCY, WEEKS 3-6
     Route: 065
  2. CARIPRAZINE HCL - BP [Suspect]
     Active Substance: CARIPRAZINE HYDROCHLORIDE
     Dosage: 1.5 MG, UNKNOWN FREQUENCY, WEEKS 0-3
     Route: 065

REACTIONS (2)
  - Aggression [Unknown]
  - Affective disorder [Unknown]
